FAERS Safety Report 13224359 (Version 2)
Quarter: 2017Q1

REPORT INFORMATION
  Report Type: Spontaneous
  Country: US (occurrence: US)
  Receive Date: 20170212
  Receipt Date: 20170223
  Transmission Date: 20170428
  Serious: No
  Sender: FDA-Public Use
  Company Number: US-ELI_LILLY_AND_COMPANY-US201702001176

PATIENT
  Sex: Male

DRUGS (1)
  1. TALTZ [Suspect]
     Active Substance: IXEKIZUMAB
     Indication: ERYTHRODERMIC PSORIASIS
     Dosage: 80 MG, OTHER
     Route: 065
     Dates: start: 20170116, end: 20170130

REACTIONS (4)
  - Rash generalised [Unknown]
  - Injection site reaction [Unknown]
  - Psoriasis [Unknown]
  - Hypersensitivity [Unknown]

NARRATIVE: CASE EVENT DATE: 20170123
